FAERS Safety Report 5740526-1 (Version None)
Quarter: 2008Q2

REPORT INFORMATION
  Report Type: 
  Country: None (occurrence: None)
  Receive Date: 20080516
  Receipt Date: 20080505
  Transmission Date: 20081010
  Serious: Yes (Other)
  Sender: FDA-Public Use
  Company Number: BR-JNJFOC-20080501982

PATIENT
  Age: 53 Year
  Sex: Female

DRUGS (1)
  1. IMOSEC [Suspect]
     Indication: DIARRHOEA
     Dosage: 8 MG TO 10 MG A DAY
     Route: 048

REACTIONS (5)
  - ABDOMINAL PAIN [None]
  - ASTHENIA [None]
  - DISCOMFORT [None]
  - HYPOKINESIA [None]
  - WEIGHT DECREASED [None]
